FAERS Safety Report 4544702-5 (Version None)
Quarter: 2005Q1

REPORT INFORMATION
  Report Type: 
  Country: None (occurrence: None)
  Receive Date: 20050105
  Receipt Date: 20041209
  Transmission Date: 20050727
  Serious: Yes (Other)
  Sender: FDA-Public Use
  Company Number: 200419471US

PATIENT
  Age: 19 Year
  Sex: Female

DRUGS (7)
  1. KETEK [Suspect]
     Indication: ASTHMA
     Route: 048
     Dates: start: 20041203, end: 20041207
  2. KETEK [Suspect]
     Indication: SINUSITIS
     Route: 048
     Dates: start: 20041203, end: 20041207
  3. SINGULAIR [Concomitant]
  4. ADVAIR DISKUS 100/50 [Concomitant]
  5. ALLEGRA [Concomitant]
  6. XOPENEX [Concomitant]
  7. DUONEB [Concomitant]

REACTIONS (2)
  - ACTIVITIES OF DAILY LIVING IMPAIRED [None]
  - BLINDNESS TRANSIENT [None]
